FAERS Safety Report 11044357 (Version 1)
Quarter: 2015Q2

REPORT INFORMATION
  Report Type: Spontaneous
  Country: FR (occurrence: FR)
  Receive Date: 20150417
  Receipt Date: 20150417
  Transmission Date: 20150821
  Serious: Yes (Hospitalization)
  Sender: FDA-Public Use
  Company Number: FR-PFIZER INC-2015128583

PATIENT
  Age: 87 Year
  Sex: Female

DRUGS (5)
  1. ARTOTEC [Suspect]
     Active Substance: DICLOFENAC SODIUM\MISOPROSTOL
     Indication: BACK PAIN
     Dosage: UNK
     Route: 048
     Dates: start: 201411, end: 201412
  2. INIPOMP [Concomitant]
     Active Substance: PANTOPRAZOLE SODIUM
     Dosage: 20 MG, DAILY
     Route: 048
  3. DOLIPRANE [Concomitant]
     Active Substance: ACETAMINOPHEN
     Dosage: 1000 MG, AS NEEDED
     Route: 048
  4. LASILIX [Interacting]
     Active Substance: FUROSEMIDE
     Indication: PULMONARY EMBOLISM
     Dosage: 40 MG/24H, UNK
     Route: 042
     Dates: start: 201411, end: 201412
  5. TOPALGIC LP [Concomitant]
     Active Substance: TRAMADOL
     Dosage: 200 MG, DAILY
     Route: 048

REACTIONS (5)
  - Hyperkalaemia [Recovered/Resolved]
  - Acute kidney injury [Recovered/Resolved]
  - Drug interaction [Recovered/Resolved]
  - Atrioventricular block [Recovered/Resolved]
  - Bradycardia [Recovered/Resolved]

NARRATIVE: CASE EVENT DATE: 20141201
